FAERS Safety Report 5444777-5 (Version None)
Quarter: 2007Q3

REPORT INFORMATION
  Report Type: 
  Country: None (occurrence: None)
  Receive Date: 20070906
  Receipt Date: 20070403
  Transmission Date: 20080115
  Serious: No
  Sender: FDA-Public Use
  Company Number: A0642619A

PATIENT
  Age: 57 Year
  Sex: Female

DRUGS (15)
  1. REQUIP [Suspect]
     Dosage: 1MG PER DAY
     Route: 048
  2. PLAVIX [Concomitant]
  3. COUMADIN [Concomitant]
  4. ASPIRIN [Concomitant]
  5. LYRICA [Concomitant]
  6. SKELAXIN [Concomitant]
  7. POTASSIUM CHLORIDE [Concomitant]
  8. LANOXIN [Concomitant]
  9. ARTHROTEC [Concomitant]
  10. METHADONE HCL [Concomitant]
  11. PRENATAL VITAMINS [Concomitant]
  12. VITAMIN B6 [Concomitant]
  13. MSM [Concomitant]
  14. ALBUTEROL [Concomitant]
  15. ASCORBIC ACID [Concomitant]

REACTIONS (1)
  - THERAPEUTIC RESPONSE UNEXPECTED [None]
